FAERS Safety Report 4263274-6 (Version None)
Quarter: 2004Q1

REPORT INFORMATION
  Report Type: 
  Country: None (occurrence: None)
  Receive Date: 20040104
  Receipt Date: 20040104
  Transmission Date: 20041129
  Serious: Yes (Other)
  Sender: FDA-Public Use
  Company Number: None

PATIENT
  Age: 55 Year
  Sex: Male

DRUGS (6)
  1. ABILIFY [Suspect]
     Dosage: 30MG DAILY ORAL
     Route: 048
     Dates: start: 20031119, end: 20031119
  2. ASPIRIN [Concomitant]
  3. PAXIL [Concomitant]
  4. LIPITOR [Concomitant]
  5. DILANTIN [Concomitant]
  6. CLONAZEPAM [Concomitant]

REACTIONS (3)
  - EYE SWELLING [None]
  - PRURITUS [None]
  - TINNITUS [None]
